FAERS Safety Report 5055582-6 (Version None)
Quarter: 2006Q3

REPORT INFORMATION
  Report Type: 
  Country: None (occurrence: None)
  Receive Date: 20060719
  Receipt Date: 20060331
  Transmission Date: 20061208
  Serious: No
  Sender: FDA-Public Use
  Company Number: US-AMGEN-US174741

PATIENT
  Age: 64 Year
  Sex: Female

DRUGS (1)
  1. EPOGEN [Suspect]
     Indication: DIALYSIS

REACTIONS (4)
  - C-REACTIVE PROTEIN INCREASED [None]
  - HELICOBACTER INFECTION [None]
  - POLYP [None]
  - THERAPEUTIC RESPONSE DECREASED [None]
